FAERS Safety Report 6458609-X (Version None)
Quarter: 2009Q4

REPORT INFORMATION
  Report Type: 
  Country: None (occurrence: None)
  Receive Date: 20091126
  Receipt Date: 20091123
  Transmission Date: 20100525
  Serious: Yes (Life-Threatening)
  Sender: FDA-Public Use
  Company Number: US-BRISTOL-MYERS SQUIBB COMPANY-14869176

PATIENT
  Age: 67 Year
  Sex: Male

DRUGS (9)
  1. CARBOPLATIN [Suspect]
     Indication: HEAD AND NECK CANCER
     Dosage: LAST DOSE RECEIVED ON 07JUN06
     Route: 042
     Dates: start: 20060503
  2. PACLITAXEL [Suspect]
     Indication: HEAD AND NECK CANCER
     Dosage: LAST DOSE RECEIVED ON 07JUN06
     Route: 042
     Dates: start: 20060503
  3. PANITUMUMAB [Suspect]
     Indication: HEAD AND NECK CANCER
     Dosage: LAST DOSE RECEIVED ON 07JUN06
     Route: 042
     Dates: start: 20060503
  4. RADIATION THERAPY [Suspect]
     Indication: HEAD AND NECK CANCER
  5. FLUCONAZOLE [Concomitant]
     Route: 048
  6. FENTANYL-100 [Concomitant]
  7. METOCLOPRAMIDE [Concomitant]
  8. OXYCET [Concomitant]
  9. ONDANSETRON HCL [Concomitant]

REACTIONS (1)
  - MUCOSAL INFLAMMATION [None]
